FAERS Safety Report 23945783 (Version 1)
Quarter: 2024Q2

REPORT INFORMATION
  Report Type: Spontaneous
  Country: CN (occurrence: CN)
  Receive Date: 20240606
  Receipt Date: 20240606
  Transmission Date: 20240716
  Serious: Yes (Other)
  Sender: FDA-Public Use
  Company Number: CN-SHANGHAI JUNSHI BIOSCIENCES CO., LTD.-CN2024010170

PATIENT

DRUGS (3)
  1. TORIPALIMAB [Suspect]
     Active Substance: TORIPALIMAB
     Indication: Gastric cancer
     Dosage: 240 MG, EVERY 21 DAYS
     Dates: start: 20240503, end: 20240503
  2. OXALIPLATIN [Suspect]
     Active Substance: OXALIPLATIN
     Indication: Gastric cancer
     Dosage: 150 MG (D1), EVERY 21 DAYS
     Dates: start: 20240503, end: 20240503
  3. GIMERACIL\OTERACIL\TEGAFUR [Suspect]
     Active Substance: GIMERACIL\OTERACIL POTASSIUM\TEGAFUR
     Indication: Gastric cancer
     Dosage: 2 CAPSULES IN THE MORNING AND 3 CAPSULES IN THE EVENING (D1-D14), 3 WEEKS AS A CYCLE)
     Dates: start: 20240503, end: 20240504

REACTIONS (2)
  - Xerophthalmia [Recovering/Resolving]
  - Off label use [Unknown]

NARRATIVE: CASE EVENT DATE: 20240503
